FAERS Safety Report 9379523 (Version 1)
Quarter: 2013Q3

REPORT INFORMATION
  Report Type: Spontaneous
  Country: FR (occurrence: FR)
  Receive Date: 20130702
  Receipt Date: 20130702
  Transmission Date: 20140515
  Serious: Yes (Hospitalization)
  Sender: FDA-Public Use
  Company Number: FR-RANBAXY-2013RR-68446

PATIENT
  Age: 72 Year
  Sex: Male

DRUGS (6)
  1. AMOXICILLIN [Suspect]
     Indication: NASOPHARYNGITIS
     Dosage: 500 MG TID
     Route: 048
     Dates: start: 20121116, end: 20121124
  2. ZOVIRAX [Suspect]
     Indication: MENINGITIS VIRAL
     Dosage: 750 MG TID
     Route: 042
     Dates: start: 20121119, end: 20121121
  3. FOZITEC [Concomitant]
     Indication: PRODUCT USED FOR UNKNOWN INDICATION
     Dosage: 20 MG, DAILY
     Route: 065
  4. REFRESH [Concomitant]
     Indication: PRODUCT USED FOR UNKNOWN INDICATION
     Dosage: 1 DROP, BID
     Route: 065
  5. TRIMETAZIDINE HYDROCHLORIDE [Concomitant]
     Indication: PRODUCT USED FOR UNKNOWN INDICATION
     Dosage: 20 MG TID
     Route: 065
  6. ALFUZOSINE [Concomitant]
     Indication: URINARY RETENTION
     Dosage: UNK
     Route: 065

REACTIONS (1)
  - Renal failure acute [Recovered/Resolved]
